FAERS Safety Report 6144727-2 (Version None)
Quarter: 2009Q2

REPORT INFORMATION
  Report Type: 
  Country: None (occurrence: None)
  Receive Date: 20090406
  Receipt Date: 20090325
  Transmission Date: 20091009
  Serious: Yes (Hospitalization)
  Sender: FDA-Public Use
  Company Number: FR-CELGENEUS-056-20484-09031736

PATIENT
  Sex: Male

DRUGS (3)
  1. INNOHEP [Suspect]
     Indication: PROPHYLAXIS
     Route: 058
     Dates: start: 20081023, end: 20081110
  2. HEPARIN SODIUM [Suspect]
     Indication: PULMONARY EMBOLISM
     Route: 051
     Dates: start: 20081110, end: 20081115
  3. LOVENOX [Suspect]
     Indication: PULMONARY EMBOLISM
     Route: 058
     Dates: start: 20081115, end: 20081118

REACTIONS (1)
  - HEPARIN-INDUCED THROMBOCYTOPENIA [None]
